FAERS Safety Report 9767345 (Version 2)
Quarter: 2013Q4

REPORT INFORMATION
  Report Type: Spontaneous
  Country: FR (occurrence: FR)
  Receive Date: 20131217
  Receipt Date: 20131217
  Transmission Date: 20140711
  Serious: Yes (Hospitalization)
  Sender: FDA-Public Use
  Company Number: FR-ASTRAZENECA-2013SE70459

PATIENT
  Age: 27103 Day
  Sex: Female

DRUGS (1)
  1. INEXIUM [Suspect]
     Route: 048
     Dates: start: 201302

REACTIONS (5)
  - Fall [Unknown]
  - Hypocalcaemia [Unknown]
  - Convulsion [Unknown]
  - Hypomagnesaemia [Recovered/Resolved]
  - Malaise [Unknown]
